FAERS Safety Report 7632218-9 (Version None)
Quarter: 2011Q3

REPORT INFORMATION
  Report Type: 
  Country: None (occurrence: None)
  Receive Date: 20110725
  Receipt Date: 20100629
  Transmission Date: 20111222
  Serious: Yes (Life-Threatening)
  Sender: FDA-Public Use
  Company Number: US-BRISTOL-MYERS SQUIBB COMPANY-15155294

PATIENT
  Age: 81 Year
  Sex: Female
  Weight: 58 kg

DRUGS (3)
  1. COUMADIN [Suspect]
     Route: 048
     Dates: start: 20100501, end: 20100502
  2. OCTREOTIDE ACETATE [Suspect]
     Route: 058
  3. LOVENOX [Suspect]
     Indication: THROMBOSIS PROPHYLAXIS
     Route: 058
     Dates: start: 20100502, end: 20100503

REACTIONS (2)
  - ABDOMINAL WALL HAEMATOMA [None]
  - PROTHROMBIN TIME PROLONGED [None]
